FAERS Safety Report 21421391 (Version 1)
Quarter: 2022Q4

REPORT INFORMATION
  Report Type: Spontaneous
  Country: IN (occurrence: IN)
  Receive Date: 20221007
  Receipt Date: 20221007
  Transmission Date: 20230113
  Serious: Yes (Other)
  Sender: FDA-Public Use
  Company Number: IN-LUPIN PHARMACEUTICALS INC.-2022-11688

PATIENT
  Age: 48 Year
  Sex: Male

DRUGS (1)
  1. ATORVASTATIN CALCIUM [Suspect]
     Active Substance: ATORVASTATIN CALCIUM
     Indication: Acute myocardial infarction
     Dosage: 40 MILLIGRAM
     Route: 065

REACTIONS (2)
  - Myopathy [Recovered/Resolved]
  - Trismus [Recovered/Resolved]
